FAERS Safety Report 5219358-9 (Version None)
Quarter: 2007Q1

REPORT INFORMATION
  Report Type: 
  Country: None (occurrence: None)
  Receive Date: 20070125
  Receipt Date: 20070112
  Transmission Date: 20070707
  Serious: Yes (Hospitalization)
  Sender: FDA-Public Use
  Company Number: SE-ELI_LILLY_AND_COMPANY-SE200701002653

PATIENT
  Age: 41 Year
  Sex: Female

DRUGS (4)
  1. CYMBALTA [Suspect]
     Indication: DEPRESSION
     Dosage: 30 MG, DAILY (1/D)
     Route: 048
     Dates: start: 20061006, end: 20061013
  2. TRAMADOL - SLOW RELEASE [Concomitant]
     Indication: VERTEBRAL INJURY
     Dosage: 300 MG, DAILY (1/D)
     Route: 048
     Dates: start: 20060201
  3. PANODIL [Concomitant]
     Indication: VERTEBRAL INJURY
     Dosage: 500 MG, OTHER
     Route: 048
     Dates: start: 20060201, end: 20061013
  4. TRAMADOL HCL [Concomitant]
     Dosage: 100 MG, OTHER

REACTIONS (9)
  - ABDOMINAL PAIN [None]
  - HEADACHE [None]
  - LEUKOPENIA [None]
  - MIXED HEPATOCELLULAR-CHOLESTATIC INJURY [None]
  - NAUSEA [None]
  - PARVOVIRUS INFECTION [None]
  - PYREXIA [None]
  - TREMOR [None]
  - VOMITING [None]
